FAERS Safety Report 10688232 (Version 1)
Quarter: 2015Q1

REPORT INFORMATION
  Report Type: Spontaneous
  Country: FR (occurrence: FR)
  Receive Date: 20150102
  Receipt Date: 20150102
  Transmission Date: 20150720
  Serious: Yes (Hospitalization, Other)
  Sender: FDA-Public Use
  Company Number: FR-UCBSA-2014023227

PATIENT
  Age: 60 Year
  Sex: Male

DRUGS (8)
  1. METFORMINE [Concomitant]
     Active Substance: METFORMIN HYDROCHLORIDE
     Indication: PRODUCT USED FOR UNKNOWN INDICATION
     Dosage: 1000
  2. KEPPRA [Suspect]
     Active Substance: LEVETIRACETAM
     Dosage: ASCENDING DOSE
     Route: 048
     Dates: start: 2014
  3. DEPAKINE [Concomitant]
     Active Substance: VALPROATE SODIUM
     Indication: HYPONATRAEMIA
     Dosage: 500
     Dates: start: 20140724, end: 2014
  4. STILNOX [Concomitant]
     Active Substance: ZOLPIDEM TARTRATE
     Indication: PRODUCT USED FOR UNKNOWN INDICATION
     Dosage: 10
  5. DEPAKINE [Concomitant]
     Active Substance: VALPROATE SODIUM
     Dosage: DECREASING DOSE
     Dates: start: 2014, end: 2014
  6. KEPPRA [Suspect]
     Active Substance: LEVETIRACETAM
     Indication: PRODUCT USED FOR UNKNOWN INDICATION
     Dosage: 500 MG, 2X/DAY (BID)
     Route: 048
     Dates: start: 20140724, end: 2014
  7. PLAVIX [Concomitant]
     Active Substance: CLOPIDOGREL BISULFATE
     Indication: PRODUCT USED FOR UNKNOWN INDICATION
     Dosage: 75
  8. THERALENE [Concomitant]
     Active Substance: TRIMEPRAZINE
     Indication: PRODUCT USED FOR UNKNOWN INDICATION
     Dosage: UNK
     Dates: start: 20140808

REACTIONS (5)
  - Insomnia [Recovered/Resolved]
  - Major depression [Recovered/Resolved]
  - Asthenia [Recovered/Resolved]
  - General physical health deterioration [Unknown]
  - Decreased appetite [Recovered/Resolved]

NARRATIVE: CASE EVENT DATE: 20140803
